FAERS Safety Report 9881692 (Version 3)
Quarter: 2014Q1

REPORT INFORMATION
  Report Type: Spontaneous
  Country: DE (occurrence: DE)
  Receive Date: 20140207
  Receipt Date: 20140324
  Transmission Date: 20141002
  Serious: Yes (Life-Threatening, Hospitalization)
  Sender: FDA-Public Use
  Company Number: DE-OTSUKA-EU-2014-10037

PATIENT
  Sex: Female

DRUGS (9)
  1. SAMSCA [Suspect]
     Indication: INAPPROPRIATE ANTIDIURETIC HORMONE SECRETION
     Dosage: 15 MG MILLIGRAM(S), QW
     Route: 065
     Dates: start: 20130729
  2. SAMSCA [Suspect]
     Dosage: 7.5 MG MILLIGRAM(S), UNK
     Route: 048
     Dates: end: 20130814
  3. FONDAPARINUX [Concomitant]
     Dosage: UNK, UNKNOWN
     Route: 065
  4. AMLODIPINE [Concomitant]
     Dosage: 5 MG MILLIGRAM(S), BID
     Route: 065
  5. BISOPROLOL [Concomitant]
     Dosage: 2.5 MG MILLIGRAM(S), DAILY DOSE
     Route: 065
  6. VITAMIN D [Concomitant]
     Dosage: 10 DF DOSAGE FORM, DAILY DOSE
     Route: 065
  7. HYDROCORTISONE [Concomitant]
     Dosage: 05 MG MILLIGRAM(S), DAILY DOSE
     Route: 065
  8. NEUROTRAT S [Concomitant]
     Dosage: UNK, TIW
     Route: 065
  9. ERYTHROPOIETIN [Concomitant]
     Dosage: 6000 USP UNIT, TIW
     Route: 058

REACTIONS (4)
  - Shock haemorrhagic [Recovered/Resolved]
  - Urinary bladder haemorrhage [Recovered/Resolved]
  - Wrong technique in drug usage process [Unknown]
  - Incorrect drug administration rate [Unknown]
